FAERS Safety Report 23267858 (Version 1)
Quarter: 2023Q4

REPORT INFORMATION
  Report Type: Spontaneous
  Country: US (occurrence: None)
  Receive Date: 20231205
  Receipt Date: 20231205
  Transmission Date: 20240110
  Serious: Yes (Hospitalization)
  Sender: FDA-Public Use
  Company Number: None

PATIENT
  Age: 60 Year
  Sex: Male
  Weight: 80.55 kg

DRUGS (2)
  1. FLUTICASONE [Suspect]
     Active Substance: FLUTICASONE
     Indication: Ear infection
     Dates: start: 20231127, end: 20231204
  2. FLUTICASONE [Suspect]
     Active Substance: FLUTICASONE
     Indication: Ear congestion

REACTIONS (8)
  - Erythema [None]
  - Swelling face [None]
  - Dyspnoea [None]
  - Wheezing [None]
  - Nasal discomfort [None]
  - Cough [None]
  - Headache [None]
  - Chest discomfort [None]

NARRATIVE: CASE EVENT DATE: 20231202
